FAERS Safety Report 5019836-1 (Version None)
Quarter: 2006Q2

REPORT INFORMATION
  Report Type: 
  Country: None (occurrence: None)
  Receive Date: 20060607
  Receipt Date: 20060531
  Transmission Date: 20061013
  Serious: Yes (Hospitalization)
  Sender: FDA-Public Use
  Company Number: FR-JNJFOC-20060600127

PATIENT
  Age: 27 Year
  Sex: Female

DRUGS (5)
  1. ORTHO EVRA [Suspect]
     Indication: CONTRACEPTION
     Route: 062
  2. GAVISCON [Suspect]
     Route: 048
  3. GAVISCON [Suspect]
     Indication: DRUG USE FOR UNKNOWN INDICATION
     Route: 048
  4. XENICAL [Suspect]
     Indication: DRUG USE FOR UNKNOWN INDICATION
     Route: 048
  5. NEXIUM [Concomitant]
     Route: 065

REACTIONS (2)
  - HAEMOLYTIC ANAEMIA [None]
  - THROMBOTIC THROMBOCYTOPENIC PURPURA [None]
